FAERS Safety Report 11322491 (Version 1)
Quarter: 2015Q3

REPORT INFORMATION
  Report Type: Spontaneous
  Country: US (occurrence: US)
  Receive Date: 20150730
  Receipt Date: 20150730
  Transmission Date: 20151125
  Serious: No
  Sender: FDA-Public Use
  Company Number: US-PFIZER INC-2015241401

PATIENT
  Age: 62 Year
  Sex: Female
  Weight: 92.97 kg

DRUGS (1)
  1. LYRICA [Suspect]
     Active Substance: PREGABALIN
     Indication: FIBROMYALGIA
     Dosage: 75 MG, 2X/DAY
     Dates: start: 2015, end: 2015

REACTIONS (13)
  - Activities of daily living impaired [Unknown]
  - Vision blurred [Unknown]
  - Arthralgia [Unknown]
  - Pain [Unknown]
  - Dry mouth [Unknown]
  - Irritability [Unknown]
  - Crying [Unknown]
  - Rash [Unknown]
  - Condition aggravated [Unknown]
  - Depression [Unknown]
  - Disturbance in attention [Unknown]
  - Logorrhoea [Unknown]
  - Panic attack [Unknown]

NARRATIVE: CASE EVENT DATE: 20150601
